FAERS Safety Report 13777440 (Version 1)
Quarter: 2017Q3

REPORT INFORMATION
  Report Type: Spontaneous
  Country: US (occurrence: US)
  Receive Date: 20170721
  Receipt Date: 20170721
  Transmission Date: 20171127
  Serious: No
  Sender: FDA-Public Use
  Company Number: US-CELGENEUS-USA-20170702968

PATIENT
  Sex: Male

DRUGS (2)
  1. POMALYST [Suspect]
     Active Substance: POMALIDOMIDE
     Indication: POLYNEUROPATHY
     Dosage: 3 MILLIGRAM
     Route: 048
     Dates: start: 20170508
  2. POMALYST [Suspect]
     Active Substance: POMALIDOMIDE
     Indication: PLASMA CELL MYELOMA

REACTIONS (3)
  - Viral upper respiratory tract infection [Unknown]
  - Upper respiratory tract infection bacterial [Unknown]
  - Muscle disorder [Unknown]

NARRATIVE: CASE EVENT DATE: 2017
